FAERS Safety Report 14526317 (Version 2)
Quarter: 2018Q1

REPORT INFORMATION
  Report Type: Report from Study
  Country: DE (occurrence: DE)
  Receive Date: 20180213
  Receipt Date: 20180223
  Transmission Date: 20180509
  Serious: Yes (Life-Threatening, Hospitalization, Other)
  Sender: FDA-Public Use
  Company Number: DE-AUROBINDO-AUR-APL-2018-006017

PATIENT
  Sex: Male
  Weight: 108 kg

DRUGS (6)
  1. RAMIPRIL. [Suspect]
     Active Substance: RAMIPRIL
     Dosage: 10 MG, DAILY
     Route: 048
  2. HUMIRA [Suspect]
     Active Substance: ADALIMUMAB
     Indication: PSORIATIC ARTHROPATHY
     Dosage: ()
  3. HUMIRA [Suspect]
     Active Substance: ADALIMUMAB
     Indication: PSORIATIC ARTHROPATHY
  4. HUMIRA [Suspect]
     Active Substance: ADALIMUMAB
     Indication: PSORIASIS
     Dosage: 40 MG, UNK
     Route: 058
     Dates: start: 201412, end: 201712
  5. RAMIPRIL. [Suspect]
     Active Substance: RAMIPRIL
     Indication: PRODUCT USED FOR UNKNOWN INDICATION
     Dosage: 10 MG, ONCE A DAY
     Route: 065
  6. AMLODIPINE [Suspect]
     Active Substance: AMLODIPINE BESYLATE
     Indication: PRODUCT USED FOR UNKNOWN INDICATION
     Dosage: 10 MG, UNK
     Route: 065

REACTIONS (18)
  - Marrow hyperplasia [Unknown]
  - Bone marrow failure [Unknown]
  - Lymphadenopathy [Unknown]
  - Musculoskeletal chest pain [Unknown]
  - Hyperplasia [Unknown]
  - Fatigue [Unknown]
  - Cerebral haemorrhage [Unknown]
  - Haematoma [Unknown]
  - Fracture displacement [Unknown]
  - Rib fracture [Unknown]
  - Fall [Unknown]
  - Bile duct stone [Unknown]
  - Epistaxis [Unknown]
  - Intervertebral disc displacement [Unknown]
  - Intervertebral disc space narrowing [Unknown]
  - Immune thrombocytopenic purpura [Recovered/Resolved]
  - Vertebral osteophyte [Unknown]
  - Injury [Unknown]

NARRATIVE: CASE EVENT DATE: 201610
